FAERS Safety Report 9702320 (Version 1)
Quarter: 2013Q4

REPORT INFORMATION
  Report Type: Spontaneous
  Country: US (occurrence: US)
  Receive Date: 20131121
  Receipt Date: 20131121
  Transmission Date: 20140711
  Serious: Yes (Death, Other)
  Sender: FDA-Public Use
  Company Number: PHHY2013US132120

PATIENT
  Sex: 0

DRUGS (2)
  1. CUBICIN [Suspect]
     Indication: OFF LABEL USE
  2. VANCOMYCIN [Suspect]

REACTIONS (2)
  - Death [Fatal]
  - Rhabdomyolysis [Unknown]
